FAERS Safety Report 6267261-8 (Version None)
Quarter: 2009Q3

REPORT INFORMATION
  Report Type: 
  Country: None (occurrence: None)
  Receive Date: 20090714
  Receipt Date: 20090702
  Transmission Date: 20100115
  Serious: Yes (Death, Other)
  Sender: FDA-Public Use
  Company Number: US-PFIZER INC-2009236930

PATIENT
  Sex: Female

DRUGS (7)
  1. MEDROXYPROGESTERONE AND MEDROXYPROGESTERONE ACETATE [Suspect]
     Indication: HORMONE REPLACEMENT THERAPY
     Dosage: UNK
     Route: 048
  2. PREMPRO [Suspect]
     Indication: HORMONE REPLACEMENT THERAPY
     Dosage: 0.625 MG, UNK
     Dates: start: 19970101, end: 19990101
  3. DIGOXIN [Concomitant]
     Indication: SICK SINUS SYNDROME
     Dosage: 0.25 MG, UNK
     Dates: start: 19900803, end: 20060101
  4. ATIVAN [Concomitant]
     Indication: ANXIETY
     Dosage: 2 MG, UNK
     Dates: start: 19950701, end: 20060101
  5. COUMADIN [Concomitant]
     Indication: ATRIAL FLUTTER
     Dosage: 2.5 MG, UNK
     Dates: start: 19900803, end: 20060101
  6. COUMADIN [Concomitant]
     Indication: THROMBOSIS PROPHYLAXIS
  7. POTASSIUM [Concomitant]
     Dosage: UNK
     Dates: start: 19900803, end: 20060101

REACTIONS (2)
  - BREAST CANCER FEMALE [None]
  - ENDOMETRIAL CANCER [None]
